FAERS Safety Report 20068056 (Version 1)
Quarter: 2021Q4

REPORT INFORMATION
  Report Type: Report from Study
  Country: US (occurrence: US)
  Receive Date: 20211115
  Receipt Date: 20211115
  Transmission Date: 20220304
  Serious: Yes (Other)
  Sender: FDA-Public Use
  Company Number: US-TAKEDA-2021TUS069093

PATIENT
  Age: 69 Year
  Sex: Female

DRUGS (2)
  1. HUMAN IMMUNOGLOBULIN G\HYALURONIDASE RECOMBINANT HUMAN [Suspect]
     Active Substance: HUMAN IMMUNOGLOBULIN G\HYALURONIDASE RECOMBINANT HUMAN
     Indication: Immunodeficiency common variable
     Dosage: UNK
     Route: 065
  2. GAMMAGARD LIQUID [Suspect]
     Active Substance: HUMAN IMMUNOGLOBULIN G
     Indication: Immunodeficiency common variable
     Dosage: UNK
     Route: 042

REACTIONS (6)
  - Anaphylactic reaction [Unknown]
  - Fall [Recovered/Resolved]
  - Foot fracture [Recovered/Resolved]
  - Infusion site erythema [Unknown]
  - Infusion site swelling [Unknown]
  - Headache [Unknown]

NARRATIVE: CASE EVENT DATE: 20210601
